FAERS Safety Report 7811246-4 (Version None)
Quarter: 2011Q4

REPORT INFORMATION
  Report Type: 
  Country: None (occurrence: None)
  Receive Date: 20111013
  Receipt Date: 20111011
  Transmission Date: 20120403
  Serious: Yes (Hospitalization, Other)
  Sender: FDA-Public Use
  Company Number: IN-PFIZER INC-2011222834

PATIENT
  Age: 25 Year
  Sex: Male

DRUGS (4)
  1. ZIPRASIDONE HCL [Suspect]
     Indication: PSYCHOTIC DISORDER
     Dosage: 80 MG, UNK
     Route: 048
  2. RISPERIDONE [Suspect]
     Indication: PSYCHOTIC DISORDER
     Dosage: UNK
     Route: 048
  3. ZIPRASIDONE HCL [Suspect]
     Dosage: 100 MG, UNK
     Route: 048
  4. HALOPERIDOL [Suspect]
     Indication: PSYCHOTIC DISORDER
     Dosage: UNK
     Route: 048

REACTIONS (4)
  - PSYCHOTIC DISORDER [None]
  - BRADYCARDIA [None]
  - WEIGHT INCREASED [None]
  - EXTRAPYRAMIDAL DISORDER [None]
